FAERS Safety Report 14579593 (Version 1)
Quarter: 2018Q1

REPORT INFORMATION
  Report Type: Spontaneous
  Country: US (occurrence: US)
  Receive Date: 20180227
  Receipt Date: 20180227
  Transmission Date: 20180509
  Serious: Yes (Other)
  Sender: FDA-Public Use
  Company Number: US-GLAXOSMITHKLINE-CHPA2012US022599

PATIENT

DRUGS (6)
  1. GAS-X REGULAR STRENGTH CHEWABLE PEPPERMINT [Suspect]
     Active Substance: DIMETHICONE
     Indication: FLATULENCE
     Dosage: 1 DF, BID
     Route: 048
     Dates: start: 2007
  2. GAS-X [Suspect]
     Active Substance: DIMETHICONE
     Indication: PRODUCT USED FOR UNKNOWN INDICATION
     Dosage: UNK, Z
  3. LEVOTHYROXINE. [Suspect]
     Active Substance: LEVOTHYROXINE
     Indication: PRODUCT USED FOR UNKNOWN INDICATION
  4. VICODIN [Concomitant]
     Active Substance: ACETAMINOPHEN\HYDROCODONE BITARTRATE
     Indication: PAIN
     Dosage: UNK
     Dates: start: 2006
  5. CLONAZEPAM. [Suspect]
     Active Substance: CLONAZEPAM
     Indication: PRODUCT USED FOR UNKNOWN INDICATION
  6. L-THYROXINE [Concomitant]
     Active Substance: LEVOTHYROXINE
     Dosage: UNK
     Dates: start: 2009

REACTIONS (11)
  - Condition aggravated [Not Recovered/Not Resolved]
  - Abdominal pain upper [Unknown]
  - Flatulence [Not Recovered/Not Resolved]
  - Fatigue [Unknown]
  - Coeliac disease [Not Recovered/Not Resolved]
  - Road traffic accident [Unknown]
  - Nasal disorder [Recovered/Resolved]
  - Infection [Unknown]
  - Concomitant disease aggravated [Not Recovered/Not Resolved]
  - Drug ineffective [Unknown]
  - Defaecation urgency [Unknown]

NARRATIVE: CASE EVENT DATE: 201012
